FAERS Safety Report 12757837 (Version 1)
Quarter: 2016Q3

REPORT INFORMATION
  Report Type: Spontaneous
  Country: US (occurrence: US)
  Receive Date: 20160915
  Receipt Date: 20160915
  Transmission Date: 20161109
  Serious: No
  Sender: FDA-Public Use
  Company Number: None

PATIENT
  Sex: Male
  Weight: 68.3 kg

DRUGS (1)
  1. LEVOFLOXACIN. [Suspect]
     Active Substance: LEVOFLOXACIN
     Route: 042
     Dates: start: 20160621, end: 20160621

REACTIONS (3)
  - Tachycardia [None]
  - Tachypnoea [None]
  - Anxiety [None]

NARRATIVE: CASE EVENT DATE: 20160621
